FAERS Safety Report 9178581 (Version 1)
Quarter: 2013Q1

REPORT INFORMATION
  Report Type: Spontaneous
  Country: US (occurrence: US)
  Receive Date: 20130321
  Receipt Date: 20130321
  Transmission Date: 20140127
  Serious: Yes (Life-Threatening, Disabling)
  Sender: FDA-Public Use
  Company Number: US-GILEAD-2013-0071966

PATIENT
  Sex: Male

DRUGS (12)
  1. LETAIRIS [Suspect]
     Indication: PULMONARY ARTERIAL HYPERTENSION
     Dosage: 5 MG, QD
     Route: 048
     Dates: start: 2010, end: 201302
  2. PACERONE [Concomitant]
  3. METFORMIN [Concomitant]
  4. SIMVASTATIN [Concomitant]
  5. METOPROLOL [Concomitant]
  6. AMLODIPINE [Concomitant]
  7. HUMALOG [Concomitant]
  8. LANTUS [Concomitant]
  9. WARFARIN [Concomitant]
  10. RAMIPRIL [Concomitant]
  11. FUROSEMIDE [Concomitant]
  12. SPIRIVA [Concomitant]

REACTIONS (3)
  - Pulmonary oedema [Recovered/Resolved]
  - Infection [Recovered/Resolved]
  - Unevaluable event [Recovered/Resolved]
